FAERS Safety Report 4897881-4 (Version None)
Quarter: 2006Q1

REPORT INFORMATION
  Report Type: 
  Country: None (occurrence: None)
  Receive Date: 20060201
  Receipt Date: 20060124
  Transmission Date: 20060701
  Serious: Yes (Death, Hospitalization)
  Sender: FDA-Public Use
  Company Number: US-JNJFOC-20051101742

PATIENT
  Sex: Female
  Weight: 60.33 kg

DRUGS (41)
  1. REMICADE [Suspect]
     Route: 042
  2. REMICADE [Suspect]
     Route: 042
  3. REMICADE [Suspect]
     Route: 042
  4. REMICADE [Suspect]
     Route: 042
  5. REMICADE [Suspect]
     Route: 042
  6. REMICADE [Suspect]
     Route: 042
  7. REMICADE [Suspect]
     Route: 042
  8. REMICADE [Suspect]
     Route: 042
  9. REMICADE [Suspect]
     Route: 042
  10. REMICADE [Suspect]
     Route: 042
  11. REMICADE [Suspect]
     Route: 042
  12. REMICADE [Suspect]
     Route: 042
  13. REMICADE [Suspect]
     Route: 042
  14. REMICADE [Suspect]
     Route: 042
  15. REMICADE [Suspect]
     Route: 042
  16. REMICADE [Suspect]
     Route: 042
  17. REMICADE [Suspect]
     Route: 042
  18. REMICADE [Suspect]
     Route: 042
  19. REMICADE [Suspect]
     Route: 042
  20. REMICADE [Suspect]
     Route: 042
  21. REMICADE [Suspect]
     Route: 042
  22. REMICADE [Suspect]
     Indication: RHEUMATOID ARTHRITIS
     Route: 042
  23. METHOTREXATE [Concomitant]
  24. FOLIC ACID [Concomitant]
  25. PREDNISONE [Concomitant]
  26. PERCOCET [Concomitant]
  27. PERCOCET [Concomitant]
  28. ATENOLOL [Concomitant]
  29. MIACALCIN [Concomitant]
  30. M.V.I. [Concomitant]
  31. M.V.I. [Concomitant]
  32. M.V.I. [Concomitant]
  33. M.V.I. [Concomitant]
  34. M.V.I. [Concomitant]
  35. M.V.I. [Concomitant]
  36. M.V.I. [Concomitant]
  37. M.V.I. [Concomitant]
  38. PRANDIN [Concomitant]
  39. LISINOPRIL AND HYDROCHLOROTHIAZIDE [Concomitant]
  40. LISINOPRIL AND HYDROCHLOROTHIAZIDE [Concomitant]
  41. NEXIUM [Concomitant]

REACTIONS (4)
  - BONE TUBERCULOSIS [None]
  - FUNGAL OESOPHAGITIS [None]
  - MYCOBACTERIUM AVIUM COMPLEX INFECTION [None]
  - PNEUMONIA [None]
